FAERS Safety Report 12863723 (Version 1)
Quarter: 2016Q4

REPORT INFORMATION
  Report Type: Spontaneous
  Country: US (occurrence: US)
  Receive Date: 20161019
  Receipt Date: 20161019
  Transmission Date: 20170207
  Serious: Yes (Other)
  Sender: FDA-Public Use
  Company Number: US-TEVA-705811USA

PATIENT
  Sex: Female
  Weight: 72.19 kg

DRUGS (1)
  1. THEOPHYLLINE [Suspect]
     Active Substance: THEOPHYLLINE ANHYDROUS
     Dates: start: 2008, end: 2008

REACTIONS (3)
  - Hypersensitivity [Unknown]
  - Drug dependence [Unknown]
  - Adverse event [Unknown]

NARRATIVE: CASE EVENT DATE: 2008
